FAERS Safety Report 17475149 (Version 1)
Quarter: 2020Q1

REPORT INFORMATION
  Report Type: Spontaneous
  Country: US (occurrence: US)
  Receive Date: 20200228
  Receipt Date: 20200228
  Transmission Date: 20200409
  Serious: No
  Sender: FDA-Public Use
  Company Number: US-ABBVIE-19K-163-2985586-00

PATIENT
  Sex: Male

DRUGS (6)
  1. ANDROGEL [Suspect]
     Active Substance: TESTOSTERONE
     Indication: HYPOGONADISM
     Route: 061
  2. TESTOSTERONE. [Suspect]
     Active Substance: TESTOSTERONE
     Indication: HYPOGONADISM
     Dosage: 2.5MG DAILY; MANUFACTURED BY PERRIGO
     Route: 061
     Dates: start: 2019, end: 2019
  3. ANDROGEL [Suspect]
     Active Substance: TESTOSTERONE
     Indication: HYPOGONADISM
     Route: 061
  4. TESTOSTERONE. [Suspect]
     Active Substance: TESTOSTERONE
     Indication: HYPOGONADISM
     Dosage: 2.5 GRAMS DAILY; MANUFACTURED BY ZYDUS
     Route: 061
     Dates: end: 2019
  5. TESTOSTERONE. [Suspect]
     Active Substance: TESTOSTERONE
     Dosage: 2.5 MG DAILY; MANUFACTURED BY ZYDUS
     Route: 061
     Dates: start: 2019, end: 2019
  6. TESTOSTERONE. [Suspect]
     Active Substance: TESTOSTERONE
     Dosage: 2 X 2.5 MG DAILY;MANUFACTURED BY PERRIGO
     Route: 061
     Dates: start: 2019, end: 2019

REACTIONS (3)
  - Blood testosterone decreased [Not Recovered/Not Resolved]
  - Drug ineffective [Not Recovered/Not Resolved]
  - Headache [Recovered/Resolved]
